FAERS Safety Report 6095963-5 (Version None)
Quarter: 2009Q1

REPORT INFORMATION
  Report Type: 
  Country: None (occurrence: None)
  Receive Date: 20090227
  Receipt Date: 20080725
  Transmission Date: 20090719
  Serious: No
  Sender: FDA-Public Use
  Company Number: A0739568A

PATIENT
  Age: 29 Year
  Sex: Female

DRUGS (3)
  1. LAMICTAL [Suspect]
     Indication: LENNOX-GASTAUT SYNDROME
     Dosage: 150MG THREE TIMES PER DAY
     Route: 048
     Dates: start: 19920101
  2. ZONEGRAN [Concomitant]
  3. TRILEPTAL [Concomitant]

REACTIONS (1)
  - RASH GENERALISED [None]
